FAERS Safety Report 8205887-2 (Version None)
Quarter: 2012Q1

REPORT INFORMATION
  Report Type: 
  Country: None (occurrence: None)
  Receive Date: 20120309
  Receipt Date: 20120302
  Transmission Date: 20120608
  Serious: Yes (Hospitalization)
  Sender: FDA-Public Use
  Company Number: 2012SP012066

PATIENT
  Age: 34 Year
  Sex: Female

DRUGS (1)
  1. IMPLANON [Suspect]
     Indication: CONTRACEPTION
     Dosage: SUBD
     Route: 059
     Dates: start: 20090301

REACTIONS (3)
  - AMENORRHOEA [None]
  - NEPHROLITHIASIS [None]
  - CONDITION AGGRAVATED [None]
